FAERS Safety Report 8761492 (Version 2)
Quarter: 2013Q1

REPORT INFORMATION
  Report Type: Spontaneous
  Country: US (occurrence: US)
  Receive Date: 20120830
  Receipt Date: 20130212
  Transmission Date: 20140127
  Serious: Yes (Disabling)
  Sender: FDA-Public Use
  Company Number: US-009507513-1208USA010766

PATIENT
  Sex: Male

DRUGS (2)
  1. PEGINTRON [Suspect]
     Indication: HEPATITIS C
     Dosage: 150 MICROGRAM, SUBDERMAL ONCE A WEEK
     Route: 059
     Dates: start: 201207
  2. RIBAPAK [Suspect]
     Dosage: 600 MG, UNK

REACTIONS (2)
  - Dizziness postural [Not Recovered/Not Resolved]
  - Appetite disorder [Not Recovered/Not Resolved]
